FAERS Safety Report 7829006 (Version 5)
Quarter: 2013Q4

REPORT INFORMATION
  Report Type: Spontaneous
  Country: US (occurrence: US)
  Receive Date: 20110225
  Receipt Date: 20131007
  Transmission Date: 20140711
  Serious: Yes (Hospitalization, Other)
  Sender: FDA-Public Use
  Company Number: US-ROCHE-734157

PATIENT
  Age: 22 Year
  Sex: Male
  Weight: 55.8 kg

DRUGS (5)
  1. ACCUTANE [Suspect]
     Indication: ACNE
     Route: 065
  2. ACCUTANE [Suspect]
     Dosage: 40 MG ON ODD DAY, AND 80 MG ON EVEN DAY FOR 1 MONTH
     Route: 065
     Dates: start: 20050610, end: 20050710
  3. ACCUTANE [Suspect]
     Dosage: DOSE DECREASED
     Route: 065
     Dates: start: 20050715, end: 20050825
  4. ACCUTANE [Suspect]
     Route: 065
     Dates: start: 20060101, end: 20060601
  5. MINOCYCLINE [Concomitant]
     Indication: ACNE
     Dosage: LAST DOSE PRIOR TO SAE 22 MAR 2005
     Route: 065

REACTIONS (12)
  - Crohn^s disease [Unknown]
  - Colitis ulcerative [Unknown]
  - Gastrointestinal injury [Unknown]
  - Inflammatory bowel disease [Unknown]
  - Anal abscess [Unknown]
  - Anal fistula [Unknown]
  - Clostridium difficile colitis [Unknown]
  - Blood triglycerides increased [Unknown]
  - Blood cholesterol increased [Unknown]
  - Hernia [Unknown]
  - Cardiac disorder [Unknown]
  - Depression [Unknown]
